FAERS Safety Report 4810996-1 (Version None)
Quarter: 2005Q4

REPORT INFORMATION
  Report Type: 
  Country: None (occurrence: None)
  Receive Date: 20051025
  Receipt Date: 20051013
  Transmission Date: 20060501
  Serious: Yes (Other)
  Sender: FDA-Public Use
  Company Number: 2005091087

PATIENT
  Age: 61 Year
  Sex: Female
  Weight: 47.6277 kg

DRUGS (3)
  1. NEURONTIN [Suspect]
     Indication: PAIN
     Dosage: 2400 MG (300 MG, 8 IN 1 D)
     Dates: start: 20030101
  2. LYRICA [Suspect]
     Indication: ILL-DEFINED DISORDER
  3. OXYCONTIN [Concomitant]

REACTIONS (6)
  - CONDITION AGGRAVATED [None]
  - DRUG PRESCRIBING ERROR [None]
  - INCORRECT DOSE ADMINISTERED [None]
  - PAIN [None]
  - SOMNOLENCE [None]
  - THERAPEUTIC RESPONSE UNEXPECTED WITH DRUG SUBSTITUTION [None]
